FAERS Safety Report 14708270 (Version 2)
Quarter: 2018Q2

REPORT INFORMATION
  Report Type: Spontaneous
  Country: IT (occurrence: IT)
  Receive Date: 20180403
  Receipt Date: 20180607
  Transmission Date: 20180711
  Serious: Yes (Other)
  Sender: FDA-Public Use
  Company Number: IT-ALK-ABELLO A/S-2018AA000958

PATIENT

DRUGS (3)
  1. XYZAL [Concomitant]
     Active Substance: LEVOCETIRIZINE DIHYDROCHLORIDE
     Dosage: 20 DROP
     Route: 048
  2. GRAZAX [Suspect]
     Active Substance: PHLEUM PRATENSE POLLEN
     Indication: IMMUNISATION
     Dosage: 75000 SQ-T, QD
     Route: 060
     Dates: start: 20180201, end: 20180318
  3. DELTACORTENE [Concomitant]
     Active Substance: PREDNISONE

REACTIONS (4)
  - Laryngospasm [Recovered/Resolved]
  - Dysphagia [Recovered/Resolved]
  - Aphonia [Recovered/Resolved]
  - Dyspnoea [Recovered/Resolved]

NARRATIVE: CASE EVENT DATE: 20180318
